FAERS Safety Report 8747691 (Version 3)
Quarter: 2012Q4

REPORT INFORMATION
  Report Type: 
  Country: US (occurrence: US)
  Receive Date: 20120827
  Receipt Date: 20120904
  Transmission Date: 20130627
  Serious: Yes (Hospitalization)
  Sender: FDA-Public Use
  Company Number: US-ELI_LILLY_AND_COMPANY-US201208005873

PATIENT
  Age: 65 Year
  Sex: Male
  Weight: 105.67 kg

DRUGS (1)
  1. EFFIENT [Suspect]
     Indication: ACUTE MYOCARDIAL INFARCTION
     Dosage: 10 mg, UNK
     Dates: start: 20110909

REACTIONS (3)
  - Coronary artery restenosis [Unknown]
  - Coronary artery disease [Unknown]
  - Angina unstable [Unknown]
